FAERS Safety Report 8162729-1 (Version None)
Quarter: 2012Q1

REPORT INFORMATION
  Report Type: 
  Country: None (occurrence: None)
  Receive Date: 20120224
  Receipt Date: 20120214
  Transmission Date: 20120608
  Serious: Yes (Hospitalization)
  Sender: FDA-Public Use
  Company Number: US-JNJFOC-20120208046

PATIENT
  Age: 36 Year
  Sex: Male

DRUGS (11)
  1. INVEGA SUSTENNA [Suspect]
     Route: 030
     Dates: start: 20120103
  2. RISPERDAL [Suspect]
     Indication: SCHIZOAFFECTIVE DISORDER
     Route: 048
     Dates: start: 20110101
  3. RISPERDAL [Suspect]
     Route: 048
     Dates: start: 20120206
  4. VALPROATE SODIUM [Concomitant]
     Indication: SCHIZOAFFECTIVE DISORDER
     Dosage: 1000- 3000MG/ DAY
     Route: 048
     Dates: start: 20110801
  5. COGENTIN [Concomitant]
     Indication: PROPHYLAXIS
     Route: 048
     Dates: start: 20120206
  6. LORAZEPAM [Concomitant]
     Indication: DRUG THERAPY
     Route: 065
     Dates: start: 20120206
  7. INVEGA SUSTENNA [Suspect]
     Route: 030
     Dates: start: 20120209
  8. COLACE [Concomitant]
     Indication: PROPHYLAXIS
     Route: 048
     Dates: start: 20120206
  9. INVEGA SUSTENNA [Suspect]
     Indication: SCHIZOAFFECTIVE DISORDER
     Route: 030
     Dates: start: 20120127
  10. AMBIEN [Concomitant]
     Indication: INSOMNIA
     Dosage: 10MG/AT BEDTIME PRNAS NEEDED/ORAL
     Route: 048
     Dates: start: 20120106
  11. ZYPREXA [Concomitant]
     Indication: DRUG THERAPY
     Route: 065
     Dates: start: 20120206

REACTIONS (3)
  - TREATMENT NONCOMPLIANCE [None]
  - CONDITION AGGRAVATED [None]
  - OVERDOSE [None]
